FAERS Safety Report 18476473 (Version 5)
Quarter: 2021Q1

REPORT INFORMATION
  Report Type: Other
  Country: CZ (occurrence: CZ)
  Receive Date: 20201106
  Receipt Date: 20210119
  Transmission Date: 20210419
  Serious: Yes (Hospitalization, Other)
  Sender: FDA-Public Use
  Company Number: CZ-US-PROVELL PHARMACEUTICALS LLC-9195238

PATIENT
  Age: 96 Year
  Sex: Female

DRUGS (43)
  1. CARDILAN                           /00152401/ [Interacting]
     Active Substance: NICOFURANOSE
     Indication: PRODUCT USED FOR UNKNOWN INDICATION
  2. GUTTALAX [SODIUM PICOSULFATE] [Interacting]
     Active Substance: SODIUM PICOSULFATE
     Indication: CONSTIPATION
     Dosage: 10?20 GUTTES
  3. METHOTREXATE. [Interacting]
     Active Substance: METHOTREXATE
     Indication: RHEUMATOID ARTHRITIS
     Dates: start: 2010
  4. ROSUCARD [Interacting]
     Active Substance: ROSUVASTATIN CALCIUM
     Dosage: DOSE REDUCED
  5. ACIDUM FOLICUM [Interacting]
     Active Substance: FOLIC ACID
     Dosage: DOSE REDUCED
  6. AGEN [Interacting]
     Active Substance: AMLODIPINE BESYLATE
     Indication: PRODUCT USED FOR UNKNOWN INDICATION
  7. CONDROSULF [Interacting]
     Active Substance: SODIUM CHONDROITIN SULFATE
     Indication: PRODUCT USED FOR UNKNOWN INDICATION
     Dosage: DOSE REDUCED
  8. PREDNISONE. [Interacting]
     Active Substance: PREDNISONE
     Indication: PRODUCT USED FOR UNKNOWN INDICATION
  9. DUROGESIC [Interacting]
     Active Substance: FENTANYL
     Dosage: DOSE REDUCED
  10. ORAMELLOX [Interacting]
     Active Substance: MELOXICAM
     Dosage: DOSE REDUCED
  11. METAMIZOLE [Interacting]
     Active Substance: METAMIZOLE
     Indication: POST HERPETIC NEURALGIA
     Dosage: DOSE REDUCED
  12. HYPNOGEN [Suspect]
     Active Substance: ZOLPIDEM TARTRATE
     Indication: DRUG ABUSE
     Dosage: OVERUSED
  13. STILNOX [Interacting]
     Active Substance: ZOLPIDEM TARTRATE
     Indication: DRUG ABUSE
     Dosage: OVERUSED
  14. BETALOC ZOK [Interacting]
     Active Substance: METOPROLOL SUCCINATE
     Indication: PRODUCT USED FOR UNKNOWN INDICATION
     Dosage: DOSE REDUCED
  15. CARDILAN                           /00152401/ [Interacting]
     Active Substance: NICOFURANOSE
     Dosage: DOSE REDUCED
  16. PANADOL [Interacting]
     Active Substance: ACETAMINOPHEN
     Indication: PAIN
     Dosage: 3?4 TIMES PER DAY,
  17. OXAZEPAM. [Suspect]
     Active Substance: OXAZEPAM
     Indication: DRUG ABUSE
     Dosage: OVERUSED
  18. BETALOC                            /00376902/ [Interacting]
     Active Substance: METOPROLOL TARTRATE
     Indication: PRODUCT USED FOR UNKNOWN INDICATION
     Dosage: DOSE REDUCED
  19. EUTHYROX [Interacting]
     Active Substance: LEVOTHYROXINE SODIUM
     Dosage: DOSAGE WAS ADJUSTED
  20. METHOTREXATE. [Interacting]
     Active Substance: METHOTREXATE
     Dosage: DOSE REDUCED
  21. TEZEO [Interacting]
     Active Substance: TELMISARTAN
     Dosage: DOSE REDUCED
  22. ROSUCARD [Interacting]
     Active Substance: ROSUVASTATIN CALCIUM
     Indication: PRODUCT USED FOR UNKNOWN INDICATION
  23. CALCICHEW D3 [Interacting]
     Active Substance: CALCIUM\CHOLECALCIFEROL
     Dosage: DOSE REDUCED
  24. DUROGESIC [Interacting]
     Active Substance: FENTANYL
     Indication: POST HERPETIC NEURALGIA
     Dates: start: 2015
  25. ORAMELLOX [Interacting]
     Active Substance: MELOXICAM
     Indication: POST HERPETIC NEURALGIA
     Dates: start: 2015
  26. CONTROLOC [Interacting]
     Active Substance: PANTOPRAZOLE SODIUM
     Indication: PRODUCT USED FOR UNKNOWN INDICATION
  27. CORDARONE [Interacting]
     Active Substance: AMIODARONE HYDROCHLORIDE
     Indication: PRODUCT USED FOR UNKNOWN INDICATION
  28. PANADOL [Interacting]
     Active Substance: ACETAMINOPHEN
     Dosage: DOSE REDUCED
  29. TRAMADOL. [Suspect]
     Active Substance: TRAMADOL
     Indication: PRODUCT USED FOR UNKNOWN INDICATION
     Dosage: OVERUSED
  30. TEZEO [Interacting]
     Active Substance: TELMISARTAN
     Indication: PRODUCT USED FOR UNKNOWN INDICATION
     Dosage: 80/12.5 MG
  31. CALCICHEW D3 [Interacting]
     Active Substance: CALCIUM\CHOLECALCIFEROL
     Indication: PRODUCT USED FOR UNKNOWN INDICATION
  32. PREGABALIN. [Concomitant]
     Active Substance: PREGABALIN
     Indication: POST HERPETIC NEURALGIA
  33. EUTHYROX [Suspect]
     Active Substance: LEVOTHYROXINE SODIUM
     Indication: AUTOIMMUNE THYROIDITIS
  34. CORDARONE [Interacting]
     Active Substance: AMIODARONE HYDROCHLORIDE
     Dosage: DOSE REDUCED
  35. PREDNISONE. [Interacting]
     Active Substance: PREDNISONE
     Dosage: DOSE REDUCED
  36. NOVALGIN                           /00169801/ [Interacting]
     Active Substance: ACETAMINOPHEN\CAFFEINE\PROPYPHENAZONE
     Indication: PRODUCT USED FOR UNKNOWN INDICATION
     Dosage: DOSE REDUCED
  37. GUTTALAX [SODIUM PICOSULFATE] [Interacting]
     Active Substance: SODIUM PICOSULFATE
     Dosage: DOSE REDUCED
  38. ELIQUIS [Interacting]
     Active Substance: APIXABAN
     Indication: PRODUCT USED FOR UNKNOWN INDICATION
     Dosage: DOSE REDUCED
  39. EUTHYROX [Interacting]
     Active Substance: LEVOTHYROXINE SODIUM
     Dosage: DOSE REDUCED
  40. CONTROLOC [Interacting]
     Active Substance: PANTOPRAZOLE SODIUM
     Dosage: DOSE REDUCED
  41. ACIDUM FOLICUM [Interacting]
     Active Substance: FOLIC ACID
     Indication: PRODUCT USED FOR UNKNOWN INDICATION
  42. AGEN [Interacting]
     Active Substance: AMLODIPINE BESYLATE
     Dosage: DOSE REDUCED
  43. IBALGIN [Interacting]
     Active Substance: IBUPROFEN
     Indication: PAIN

REACTIONS (38)
  - Listless [Recovering/Resolving]
  - Hypokalaemia [Recovering/Resolving]
  - Vertigo [Recovering/Resolving]
  - Deafness [Unknown]
  - Condition aggravated [Recovered/Resolved]
  - Sleep disorder [Recovering/Resolving]
  - Product use issue [Recovered/Resolved]
  - Delirium [Recovering/Resolving]
  - Hyponatraemia [Recovering/Resolving]
  - Contusion [Recovered/Resolved]
  - Intentional product misuse [Unknown]
  - Fall [Recovered/Resolved]
  - Drug abuse [Recovering/Resolving]
  - Nausea [Recovering/Resolving]
  - Encephalopathy [Unknown]
  - Pelvic fracture [Recovered/Resolved]
  - Hypoacusis [Recovered/Resolved]
  - Drug interaction [Unknown]
  - Apathy [Recovering/Resolving]
  - Concomitant disease aggravated [Recovering/Resolving]
  - Confusional state [Recovering/Resolving]
  - Dizziness [Recovered/Resolved]
  - Anxiety [Recovered/Resolved]
  - Fracture [Recovered/Resolved]
  - Poor quality sleep [Recovered/Resolved]
  - Medication error [Recovered/Resolved]
  - Oxygen saturation decreased [Recovering/Resolving]
  - Liver function test increased [Recovering/Resolving]
  - General physical health deterioration [Unknown]
  - Restlessness [Recovered/Resolved]
  - Atrial fibrillation [Recovering/Resolving]
  - Urinary retention [Recovering/Resolving]
  - Cognitive disorder [Recovered/Resolved]
  - Overdose [Recovered/Resolved]
  - Prescription drug used without a prescription [Unknown]
  - Head discomfort [Recovering/Resolving]
  - Hypertension [Recovering/Resolving]
  - Foreign body [Recovered/Resolved]
